FAERS Safety Report 26132505 (Version 1)
Quarter: 2025Q4

REPORT INFORMATION
  Report Type: Other
  Country: US (occurrence: US)
  Receive Date: 20251208
  Receipt Date: 20251208
  Transmission Date: 20260118
  Serious: Yes (Hospitalization)
  Sender: AIRGAS
  Company Number: US-MLMSERVICE-20251119- PI718262-00242-1

PATIENT
  Age: 68 Year
  Sex: Male

DRUGS (1)
  1. NITROUS OXIDE [Suspect]
     Active Substance: NITROUS OXIDE
     Indication: General anaesthesia

REACTIONS (8)
  - Abnormal loss of weight [Unknown]
  - Pancytopenia [Unknown]
  - Condition aggravated [Recovering/Resolving]
  - Vitamin B12 deficiency [Recovering/Resolving]
  - Presyncope [Unknown]
  - Loss of consciousness [Unknown]
  - Fall [Unknown]
  - Orthostatic hypotension [Unknown]
